FAERS Safety Report 6390533-3 (Version None)
Quarter: 2009Q4

REPORT INFORMATION
  Report Type: 
  Country: None (occurrence: None)
  Receive Date: 20091005
  Receipt Date: 20091005
  Transmission Date: 20100525
  Serious: Yes (Death)
  Sender: FDA-Public Use
  Company Number: None

PATIENT
  Age: 24 Year
  Sex: Female

DRUGS (1)
  1. MITOXANTRONE HYDROCHLORIDE [Suspect]
     Indication: SECONDARY PROGRESSIVE MULTIPLE SCLEROSIS
     Dosage: CUMULATIVE DOSE: 120 MG (63 MG/M^2), (UNKNOWN)
     Route: 065

REACTIONS (1)
  - ACUTE MYELOID LEUKAEMIA [None]
